FAERS Safety Report 7166580-0 (Version None)
Quarter: 2010Q4

REPORT INFORMATION
  Report Type: 
  Country: None (occurrence: None)
  Receive Date: 20101216
  Receipt Date: 20101213
  Transmission Date: 20110411
  Serious: Yes (Hospitalization)
  Sender: FDA-Public Use
  Company Number: FR-PFIZER INC-2010169917

PATIENT
  Age: 62 Year
  Sex: Male

DRUGS (5)
  1. TAZOCILLINE [Suspect]
     Indication: INTERSTITIAL LUNG DISEASE
     Dosage: 4 G, 4X/DAY
     Route: 048
     Dates: start: 20101022, end: 20101027
  2. OFLOCET [Suspect]
     Indication: INTERSTITIAL LUNG DISEASE
     Dosage: 200 MG, 2X/DAY
     Route: 048
     Dates: start: 20101022, end: 20101026
  3. NEXIUM [Suspect]
     Dosage: 20 MG, 1X/DAY
     Route: 048
     Dates: end: 20101027
  4. PRAVASTATIN SODIUM [Suspect]
     Dosage: 10 MG, 1X/DAY
     Route: 048
     Dates: end: 20101027
  5. LOVENOX [Concomitant]
     Dosage: UNK
     Dates: end: 20101026

REACTIONS (1)
  - THROMBOCYTOPENIA [None]
